FAERS Safety Report 5832678-X (Version None)
Quarter: 2008Q3

REPORT INFORMATION
  Report Type: 
  Country: None (occurrence: None)
  Receive Date: 20080722
  Receipt Date: 20060103
  Transmission Date: 20090109
  Serious: Yes (Other)
  Sender: FDA-Public Use
  Company Number: 2006BI000264

PATIENT
  Age: 28 Year
  Sex: Female

DRUGS (6)
  1. AVONEX [Suspect]
     Indication: MULTIPLE SCLEROSIS
     Dosage: 30 UG;QW;IM
     Route: 030
     Dates: start: 20050722, end: 20050901
  2. AVONEX [Suspect]
     Indication: MULTIPLE SCLEROSIS
     Dosage: 30 UG;QW;IM
     Route: 030
     Dates: start: 20051015
  3. ELAVIL [Concomitant]
  4. MACRODANTIN [Concomitant]
  5. VICODIN [Concomitant]
  6. ATIVAN [Concomitant]

REACTIONS (3)
  - ABORTION SPONTANEOUS [None]
  - COORDINATION ABNORMAL [None]
  - PAIN [None]
